FAERS Safety Report 6959478-1 (Version None)
Quarter: 2010Q3

REPORT INFORMATION
  Report Type: 
  Country: None (occurrence: None)
  Receive Date: 20100827
  Receipt Date: 20100817
  Transmission Date: 20110219
  Serious: Yes (Hospitalization, Disabling, Other)
  Sender: FDA-Public Use
  Company Number: 675122

PATIENT
  Sex: Male

DRUGS (3)
  1. BUPIVACAINE HCL [Suspect]
     Indication: ANAESTHESIA PROCEDURE
  2. LIDOCAINE HCL [Suspect]
     Indication: ANAESTHESIA PROCEDURE
  3. CARBOCAINE [Suspect]
     Indication: ANAESTHESIA PROCEDURE

REACTIONS (10)
  - ANHEDONIA [None]
  - ANXIETY [None]
  - ARTHRITIS [None]
  - CHONDROLYSIS [None]
  - ECONOMIC PROBLEM [None]
  - FEAR [None]
  - MOVEMENT DISORDER [None]
  - MULTIPLE INJURIES [None]
  - OSTEOARTHRITIS [None]
  - PAIN [None]
